FAERS Safety Report 8863362 (Version 1)
Quarter: 2012Q4

REPORT INFORMATION
  Report Type: 
  Country: CN (occurrence: CN)
  Receive Date: 20121025
  Receipt Date: 20121025
  Transmission Date: 20130627
  Serious: Yes (Other)
  Sender: FDA-Public Use
  Company Number: CN-GLAXOSMITHKLINE-B0839972A

PATIENT
  Age: 44 Year
  Sex: Male
  Weight: 60 kg

DRUGS (1)
  1. LAMIVUDINE-HBV [Suspect]
     Indication: HEPATITIS B
     Dosage: 100MG Per day
     Route: 048
     Dates: start: 20090410, end: 20110419

REACTIONS (3)
  - Anaphylactoid reaction [Recovering/Resolving]
  - Dermatitis exfoliative [Recovering/Resolving]
  - Rash [Recovering/Resolving]
